FAERS Safety Report 7039377-X (Version None)
Quarter: 2010Q4

REPORT INFORMATION
  Report Type: 
  Country: None (occurrence: None)
  Receive Date: 20101012
  Receipt Date: 20101006
  Transmission Date: 20110411
  Serious: Yes (Hospitalization)
  Sender: FDA-Public Use
  Company Number: DE-BRISTOL-MYERS SQUIBB COMPANY-15323512

PATIENT
  Age: 66 Year
  Sex: Male
  Weight: 72 kg

DRUGS (3)
  1. CETUXIMAB [Suspect]
     Indication: HEAD AND NECK CANCER
     Dosage: REC INF GIVEN 6DAYS PRIOR TO EVENT ONSET.
     Route: 042
     Dates: start: 20100813, end: 20100928
  2. CISPLATIN [Suspect]
     Indication: HEAD AND NECK CANCER
     Dosage: REC INF GIVEN 5DAYS PRIOR TO EVENT ONSET.
     Route: 042
     Dates: start: 20100814, end: 20100929
  3. FLUOROURACIL [Suspect]
     Indication: HEAD AND NECK CANCER
     Dosage: REC INF GIVEN 2DAYS PRIOR TO EVENT ONSET.
     Route: 042
     Dates: start: 20100814, end: 20101002

REACTIONS (3)
  - ABDOMINAL PAIN [None]
  - NAUSEA [None]
  - VOMITING [None]
